FAERS Safety Report 8342439-8 (Version None)
Quarter: 2012Q2

REPORT INFORMATION
  Report Type: 
  Country: None (occurrence: None)
  Receive Date: 20120508
  Receipt Date: 20120425
  Transmission Date: 20120825
  Serious: No
  Sender: FDA-Public Use
  Company Number: US-BIOGENIDEC-2012BI014565

PATIENT
  Sex: Male

DRUGS (4)
  1. TYSABRI [Suspect]
     Indication: MULTIPLE SCLEROSIS
     Route: 042
     Dates: start: 20050128
  2. TYSABRI [Suspect]
     Route: 042
     Dates: start: 20100114, end: 20100614
  3. TYSABRI [Suspect]
     Route: 042
     Dates: start: 20060818, end: 20070920
  4. TYSABRI [Suspect]
     Route: 042
     Dates: start: 20120420

REACTIONS (1)
  - GAIT DISTURBANCE [None]
